FAERS Safety Report 15671922 (Version 1)
Quarter: 2018Q4

REPORT INFORMATION
  Report Type: Report from Study
  Country: US (occurrence: US)
  Receive Date: 20181129
  Receipt Date: 20181129
  Transmission Date: 20190205
  Serious: No
  Sender: FDA-Public Use
  Company Number: US-TESARO-US-2018TSO03572

PATIENT
  Sex: Female

DRUGS (2)
  1. ZEJULA [Suspect]
     Active Substance: NIRAPARIB
     Indication: OVARIAN CANCER
     Dosage: 300 MG, QPM (MONDAY, WEDNESDAY, FRIDAY)
     Route: 048
     Dates: start: 20170812
  2. ZEJULA [Suspect]
     Active Substance: NIRAPARIB
     Dosage: 200 MG, QPM (TUESDAY,THURSDAY, SATURDAY, SUNDAY)
     Route: 048
     Dates: start: 20170812

REACTIONS (2)
  - Eye colour change [Not Recovered/Not Resolved]
  - Eye haemorrhage [Not Recovered/Not Resolved]
